FAERS Safety Report 20007611 (Version 3)
Quarter: 2021Q4

REPORT INFORMATION
  Report Type: Spontaneous
  Country: IN (occurrence: IN)
  Receive Date: 20211028
  Receipt Date: 20211129
  Transmission Date: 20220303
  Serious: Yes (Hospitalization)
  Sender: FDA-Public Use
  Company Number: IN-PFIZER INC-202101403429

PATIENT
  Age: 63 Year
  Sex: Female
  Weight: 53 kg

DRUGS (7)
  1. PALBOCICLIB [Suspect]
     Active Substance: PALBOCICLIB
     Indication: Breast cancer metastatic
     Dosage: 125 MG, ONCE DAILY FOR 21 DAYS
     Route: 048
     Dates: start: 20210916
  2. FULVESTRANT [Concomitant]
     Active Substance: FULVESTRANT
     Dosage: 500 MG, DAY 1, 15, 30 THEN MONTHLY
     Route: 030
     Dates: start: 20210918
  3. ZOLEDRONIC ACID [Concomitant]
     Active Substance: ZOLEDRONIC ACID
     Dosage: 4 MG, DAY 1 MONTHLY X 2 MONTHS
     Route: 042
  4. MORPHINE [Concomitant]
     Active Substance: MORPHINE
     Dosage: 10 MG, 3X/DAY
  5. FENTANYL [Concomitant]
     Active Substance: FENTANYL
     Dosage: 25 MG, 72HRS
  6. CREMAFFIN [Concomitant]
     Dosage: 30 ML, 1X/DAY, BEDTIME 30 CC
  7. TRAMADOL HYDROCHLORIDE [Concomitant]
     Active Substance: TRAMADOL HYDROCHLORIDE
     Dosage: 50 MG, 3X/DAY

REACTIONS (3)
  - Neutropenia [Unknown]
  - Colitis [Unknown]
  - White blood cell count decreased [Not Recovered/Not Resolved]

NARRATIVE: CASE EVENT DATE: 20210916
